FAERS Safety Report 10478417 (Version 1)
Quarter: 2014Q3

REPORT INFORMATION
  Report Type: Spontaneous
  Country: TR (occurrence: TR)
  Receive Date: 20140926
  Receipt Date: 20140926
  Transmission Date: 20150326
  Serious: Yes (Hospitalization)
  Sender: FDA-Public Use
  Company Number: TR-MYLANLABS-2014M1005444

PATIENT

DRUGS (2)
  1. PANTOPRAZOLE [Concomitant]
     Active Substance: PANTOPRAZOLE SODIUM
     Indication: ABDOMINAL PAIN UPPER
     Route: 065
  2. URSODEOXYCHOLIC ACID [Suspect]
     Active Substance: URSODIOL
     Indication: CHOLESTASIS
     Route: 065

REACTIONS (1)
  - Drug eruption [Recovered/Resolved with Sequelae]
